FAERS Safety Report 18186846 (Version 1)
Quarter: 2020Q3

REPORT INFORMATION
  Report Type: Spontaneous
  Country: US (occurrence: US)
  Receive Date: 20200824
  Receipt Date: 20200824
  Transmission Date: 20201103
  Serious: Yes (Hospitalization)
  Sender: FDA-Public Use
  Company Number: None

PATIENT
  Sex: Female

DRUGS (1)
  1. EVEROLIMUS 5 MG PAR PHARMACEUTICAL [Suspect]
     Active Substance: EVEROLIMUS
     Indication: DIFFUSE LARGE B-CELL LYMPHOMA
     Dosage: OTHER FREQUENCY: DAILY FOR 21/28
     Route: 048
     Dates: start: 202007

REACTIONS (3)
  - Rash [None]
  - Dizziness [None]
  - Asthenia [None]
